FAERS Safety Report 5128025-1 (Version None)
Quarter: 2006Q4

REPORT INFORMATION
  Report Type: 
  Country: None (occurrence: None)
  Receive Date: 20061013
  Receipt Date: 20061013
  Transmission Date: 20070319
  Serious: Yes (Life-Threatening, Hospitalization, Other)
  Sender: FDA-Public Use
  Company Number: None

PATIENT
  Age: 65 Year
  Sex: Male
  Weight: 90.7194 kg

DRUGS (1)
  1. ZETIA [Suspect]
     Indication: BLOOD CHOLESTEROL INCREASED
     Dosage: 10 MG DAILY PO
     Route: 048
     Dates: start: 20060501, end: 20060929

REACTIONS (14)
  - ASTHENIA [None]
  - CARDIAC ARREST [None]
  - DEHYDRATION [None]
  - GAIT DISTURBANCE [None]
  - GALLBLADDER DISORDER [None]
  - GRAFT HAEMORRHAGE [None]
  - HEPATITIS CHOLESTATIC [None]
  - HEPATOCELLULAR DAMAGE [None]
  - IATROGENIC INJURY [None]
  - MUSCLE ATROPHY [None]
  - MYOCARDIAL INFARCTION [None]
  - ORAL INTAKE REDUCED [None]
  - PANCREATITIS [None]
  - POST PROCEDURAL HAEMORRHAGE [None]
